FAERS Safety Report 4748606-4 (Version None)
Quarter: 2005Q3

REPORT INFORMATION
  Report Type: 
  Country: None (occurrence: None)
  Receive Date: 20050818
  Receipt Date: 20050810
  Transmission Date: 20060218
  Serious: Yes (Other)
  Sender: FDA-Public Use
  Company Number: 002788

PATIENT
  Age: 33 Year
  Sex: Female
  Weight: 88 kg

DRUGS (7)
  1. METHYLPREDNISOLONE (METHYLPREDNISOLONE) TABLET, 4MG [Suspect]
     Indication: INTERVERTEBRAL DISC PROTRUSION
     Dosage: ORAL
     Route: 048
     Dates: start: 20040701, end: 20040701
  2. DEPO-MEDROL [Suspect]
     Dates: start: 20040408, end: 20040408
  3. DEPO-MEDROL [Suspect]
     Dates: start: 20040501, end: 20040501
  4. EPIDURAL() [Suspect]
     Dates: start: 20040401, end: 20040401
  5. CORTICOSTEROID NOS (CORTICOSTEROID NOS) PATCH [Suspect]
     Dosage: TRANSDERMAL
     Route: 062
     Dates: start: 20040701, end: 20040701
  6. LORTAB [Concomitant]
  7. PARAFON FORTE (PARACETAMOL) [Concomitant]

REACTIONS (19)
  - ABDOMINAL DISTENSION [None]
  - ALOPECIA [None]
  - BLOOD PRESSURE INCREASED [None]
  - CHEST DISCOMFORT [None]
  - CUSHING'S SYNDROME [None]
  - DIPLOPIA [None]
  - DYSPNOEA [None]
  - FACIAL SPASM [None]
  - FLUID RETENTION [None]
  - HEADACHE [None]
  - HEART RATE INCREASED [None]
  - HYPOAESTHESIA [None]
  - HYPOVENTILATION [None]
  - MENSTRUATION IRREGULAR [None]
  - PAIN IN EXTREMITY [None]
  - POLLAKIURIA [None]
  - SHOULDER PAIN [None]
  - VENTRICULAR TACHYCARDIA [None]
  - WEIGHT INCREASED [None]
